FAERS Safety Report 10229717 (Version 1)
Quarter: 2014Q2

REPORT INFORMATION
  Report Type: Spontaneous
  Country: AR (occurrence: AR)
  Receive Date: 20140611
  Receipt Date: 20140611
  Transmission Date: 20141212
  Serious: Yes (Other)
  Sender: FDA-Public Use
  Company Number: PHHY2014AR069998

PATIENT
  Age: 19 Year
  Sex: Female

DRUGS (2)
  1. TASIGNA [Suspect]
     Indication: CHRONIC MYELOID LEUKAEMIA
     Dosage: 400 MG, DAILY
     Route: 048
     Dates: start: 201205
  2. TASIGNA [Suspect]
     Dosage: UNK

REACTIONS (3)
  - Abortion spontaneous [Unknown]
  - Vomiting [Recovering/Resolving]
  - Maternal exposure during pregnancy [Unknown]
